FAERS Safety Report 20016779 (Version 1)
Quarter: 2021Q4

REPORT INFORMATION
  Report Type: Spontaneous
  Country: US (occurrence: None)
  Receive Date: 20211105
  Receipt Date: 20211105
  Transmission Date: 20220303
  Serious: Yes (Other)
  Sender: FDA-Public Use
  Company Number: None

PATIENT
  Age: 79 Year
  Sex: Female

DRUGS (1)
  1. SOTROVIMAB [Suspect]
     Active Substance: SOTROVIMAB
     Indication: COVID-19
     Dosage: OTHER FREQUENCY : ONCE;?
     Route: 042
     Dates: start: 20211104, end: 20211104

REACTIONS (13)
  - Infusion related reaction [None]
  - Dizziness [None]
  - Dyspnoea [None]
  - Heart rate decreased [None]
  - Hypotension [None]
  - Hypersensitivity [None]
  - Restless legs syndrome [None]
  - Wrong technique in product usage process [None]
  - Sinus bradycardia [None]
  - Atrioventricular block first degree [None]
  - Blood sodium increased [None]
  - Presyncope [None]
  - Asthenia [None]

NARRATIVE: CASE EVENT DATE: 20211104
